FAERS Safety Report 22197693 (Version 2)
Quarter: 2023Q2

REPORT INFORMATION
  Report Type: Report from Study
  Country: US (occurrence: US)
  Receive Date: 20230411
  Receipt Date: 20230419
  Transmission Date: 20230722
  Serious: Yes (Hospitalization)
  Sender: FDA-Public Use
  Company Number: US-PFIZER INC-PV202300059057

PATIENT
  Age: 81 Year
  Sex: Male
  Weight: 82.1 kg

DRUGS (2)
  1. AXITINIB [Suspect]
     Active Substance: AXITINIB
     Indication: Malignant melanoma
     Dosage: 5 MG, BID
     Route: 048
     Dates: start: 20230321
  2. IPILIMUMAB [Suspect]
     Active Substance: IPILIMUMAB
     Dosage: LIQUID, 250 MG, EVERY 3 WEEKS
     Route: 042
     Dates: start: 20230321

REACTIONS (1)
  - Hypotension [Recovering/Resolving]

NARRATIVE: CASE EVENT DATE: 20230328
